FAERS Safety Report 13402056 (Version 1)
Quarter: 2017Q2

REPORT INFORMATION
  Report Type: Other
  Country: CA (occurrence: CA)
  Receive Date: 20170404
  Receipt Date: 20170404
  Transmission Date: 20170830
  Serious: Yes (Other)
  Sender: FDA-Public Use
  Company Number: CA-MLMSERVICE-20170320-0652554-1

PATIENT
  Age: 7 Decade
  Sex: Male

DRUGS (1)
  1. MEDICAL OXYGEN [Suspect]
     Active Substance: OXYGEN
     Indication: OXYGEN THERAPY
     Route: 055

REACTIONS (2)
  - Ventricular tachycardia [None]
  - Atrial fibrillation [None]
